FAERS Safety Report 4707941-6 (Version None)
Quarter: 2005Q3

REPORT INFORMATION
  Report Type: 
  Country: None (occurrence: None)
  Receive Date: 20050705
  Receipt Date: 20050705
  Transmission Date: 20060218
  Serious: Yes (Other)
  Sender: FDA-Public Use
  Company Number: None

PATIENT
  Age: 21 Year
  Sex: Male
  Weight: 67.1324 kg

DRUGS (2)
  1. PHENELZINE   15MG  NARDIL [Suspect]
     Indication: PANIC ATTACK
     Dosage: 30     3   ORAL
     Route: 048
     Dates: start: 20050101, end: 20050704
  2. PHENELZINE   15MG  NARDIL [Suspect]
     Indication: SOCIAL PHOBIA
     Dosage: 30     3   ORAL
     Route: 048
     Dates: start: 20050101, end: 20050704

REACTIONS (6)
  - ANXIETY [None]
  - DRUG DOSE OMISSION [None]
  - DRUG INEFFECTIVE [None]
  - DRUG WITHDRAWAL SYNDROME [None]
  - PANIC ATTACK [None]
  - PHARMACEUTICAL PRODUCT COMPLAINT [None]
